FAERS Safety Report 23065481 (Version 2)
Quarter: 2023Q4

REPORT INFORMATION
  Report Type: Report from Study
  Country: CA (occurrence: CA)
  Receive Date: 20231013
  Receipt Date: 20231025
  Transmission Date: 20240110
  Serious: Yes (Life-Threatening, Other)
  Sender: FDA-Public Use
  Company Number: CA-SEATTLE GENETICS-2023SGN11070

PATIENT
  Age: 69 Year
  Sex: Male
  Weight: 75 kg

DRUGS (27)
  1. BRENTUXIMAB VEDOTIN [Suspect]
     Active Substance: BRENTUXIMAB VEDOTIN
     Indication: Diffuse large B-cell lymphoma recurrent
     Dosage: UNK
     Route: 065
     Dates: start: 20221202, end: 20230728
  2. RITUXIMAB [Suspect]
     Active Substance: RITUXIMAB
     Indication: Diffuse large B-cell lymphoma recurrent
     Dosage: UNK
     Route: 065
     Dates: start: 20221202, end: 20230728
  3. LENALIDOMIDE [Suspect]
     Active Substance: LENALIDOMIDE
     Indication: Diffuse large B-cell lymphoma recurrent
     Dosage: UNK
     Route: 065
     Dates: start: 20221202, end: 20230807
  4. ATORVASTATIN [Concomitant]
     Active Substance: ATORVASTATIN
     Indication: Dyslipidaemia
     Dosage: 20 MG, QD
     Route: 048
     Dates: start: 2000
  5. RABEPRAZOLE [Concomitant]
     Active Substance: RABEPRAZOLE
     Indication: Gastrooesophageal reflux disease
     Dosage: 20 MG, QD
     Route: 048
     Dates: start: 2010
  6. CLONAZEPAM [Concomitant]
     Active Substance: CLONAZEPAM
     Indication: Insomnia
     Dosage: 0.25 MG PRN
     Route: 048
     Dates: start: 2012
  7. MAGNESIUM [Concomitant]
     Active Substance: MAGNESIUM
     Indication: Hypomagnesaemia
     Dosage: 300 MG, QD
     Route: 048
     Dates: start: 2018
  8. VITAMIN E [Concomitant]
     Active Substance: .ALPHA.-TOCOPHEROL
     Indication: Vitamin supplementation
     Dosage: 400 IU, QD
     Route: 048
     Dates: start: 2020
  9. VITAMIN D3 [Concomitant]
     Active Substance: CHOLECALCIFEROL
     Indication: Vitamin supplementation
     Dosage: 25 ?G, QD
     Route: 048
     Dates: start: 2020
  10. VITAMIN B6 [Concomitant]
     Active Substance: PYRIDOXINE HYDROCHLORIDE
     Indication: Vitamin supplementation
     Dosage: 100 MG, QD
     Route: 048
     Dates: start: 2020
  11. FISH OIL\OMEGA-3 FATTY ACIDS [Concomitant]
     Active Substance: FISH OIL\OMEGA-3 FATTY ACIDS
     Indication: Supplementation therapy
     Dosage: 1200 MG, QD
     Route: 048
     Dates: start: 2020
  12. FLUTICASONE [Concomitant]
     Active Substance: FLUTICASONE
     Indication: Cough
     Dosage: 2 PUFFS, BID
     Route: 065
     Dates: start: 2021
  13. ALBUTEROL [Concomitant]
     Active Substance: ALBUTEROL
     Indication: Cough
     Dosage: 2 PUFFS, QID PRN
     Route: 065
     Dates: start: 2021
  14. POLYETHYLENE GLYCOL 3350 [Concomitant]
     Active Substance: POLYETHYLENE GLYCOL 3350
     Indication: Constipation
     Dosage: 17 G, PRN
     Route: 048
     Dates: start: 20221205
  15. METOCLOPRAMIDE [Concomitant]
     Active Substance: METOCLOPRAMIDE
     Indication: Prophylaxis of nausea and vomiting
     Dosage: 10-20 MG, Q3HR PRN
     Route: 048
     Dates: start: 20221202
  16. ACETAMINOPHEN [Concomitant]
     Active Substance: ACETAMINOPHEN
     Indication: Premedication
     Dosage: 650 MG, Q3WEEKS
     Route: 048
     Dates: start: 20221202
  17. DIPHENHYDRAMINE [Concomitant]
     Active Substance: DIPHENHYDRAMINE
     Indication: Premedication
     Dosage: 50 MG, Q3WEEKS
     Route: 048
     Dates: start: 20221202
  18. BETADERM [Concomitant]
     Active Substance: BETAMETHASONE VALERATE
     Indication: Rash maculo-papular
     Dosage: 0.05 %, BID
     Route: 061
     Dates: start: 20230123
  19. CETIRIZINE HYDROCHLORIDE [Concomitant]
     Active Substance: CETIRIZINE HYDROCHLORIDE
     Indication: Rash maculo-papular
     Dosage: 5 MG, PRN
     Route: 048
     Dates: start: 20230120
  20. HYDROCORTISONE [Concomitant]
     Active Substance: HYDROCORTISONE
     Indication: Rash maculo-papular
     Dosage: UNK, PRN
     Route: 061
     Dates: start: 20230317
  21. BENADRYL ALLERGY [Concomitant]
     Active Substance: DIPHENHYDRAMINE HYDROCHLORIDE
     Indication: Rash maculo-papular
     Dosage: 25-50 MG, PRN
     Route: 048
     Dates: start: 20230316
  22. MOMETASONE [Concomitant]
     Active Substance: MOMETASONE
     Indication: Sinusitis
     Dosage: 2 SPRAYS, BID, EACH NOSTRIL
     Route: 065
     Dates: start: 20230813
  23. MINERAL OIL [Concomitant]
     Active Substance: MINERAL OIL
     Indication: Otitis media
     Dosage: BOTH EARS, QHS, QD
     Route: 065
  24. SODIUM CHLORIDE [Concomitant]
     Active Substance: SODIUM CHLORIDE
     Indication: Sinusitis
     Dosage: 0.9 %, BOTH NOSTRILS BID
     Route: 065
     Dates: start: 20230813
  25. GABAPENTIN [Concomitant]
     Active Substance: GABAPENTIN
     Indication: Neuropathy peripheral
     Dosage: 300 MG, TID
     Route: 065
     Dates: start: 20230821
  26. LAMISIL [Concomitant]
     Active Substance: TERBINAFINE HYDROCHLORIDE
     Indication: Fungal skin infection
     Dosage: 1%, BID LEFT ANKLE
     Route: 061
     Dates: start: 20230829
  27. AMOXICILLIN\CLAVULANATE POTASSIUM [Concomitant]
     Active Substance: AMOXICILLIN\CLAVULANATE POTASSIUM
     Indication: Sinusitis
     Dosage: 875MG- 125MG, BID
     Route: 048
     Dates: start: 20230928

REACTIONS (1)
  - Myelodysplastic syndrome [Not Recovered/Not Resolved]

NARRATIVE: CASE EVENT DATE: 20230921
